FAERS Safety Report 10609991 (Version 1)
Quarter: 2014Q4

REPORT INFORMATION
  Report Type: Spontaneous
  Country: DK (occurrence: DK)
  Receive Date: 20141126
  Receipt Date: 20141126
  Transmission Date: 20150529
  Serious: Yes (Life-Threatening, Hospitalization)
  Sender: FDA-Public Use
  Company Number: DK-PFIZER INC-2014324221

PATIENT
  Age: 51 Year
  Sex: Female

DRUGS (3)
  1. ATACAND ZID [Concomitant]
     Indication: HYPERTENSION
     Dosage: 16 MG/12.5 MG
  2. KALEORID [Concomitant]
     Active Substance: POTASSIUM CHLORIDE
     Dosage: UNK
  3. TRANEXAMSYRE [Suspect]
     Active Substance: TRANEXAMIC ACID
     Indication: POST PROCEDURAL HAEMORRHAGE
     Dosage: 2 G IV, AND THEN 1 G X 3 (STRENGTH: 100 MG/ML)
     Route: 042
     Dates: start: 20141111, end: 20141112

REACTIONS (3)
  - Hypotension [Recovered/Resolved]
  - Drug intolerance [None]
  - Heart rate increased [None]

NARRATIVE: CASE EVENT DATE: 20141111
